FAERS Safety Report 12819318 (Version 1)
Quarter: 2016Q4

REPORT INFORMATION
  Report Type: Spontaneous
  Country: US (occurrence: US)
  Receive Date: 20161006
  Receipt Date: 20161006
  Transmission Date: 20170207
  Serious: No
  Sender: FDA-Public Use
  Company Number: None

PATIENT
  Age: 54 Year
  Sex: Female
  Weight: 53.07 kg

DRUGS (6)
  1. HYOSCYAMINE. [Suspect]
     Active Substance: HYOSCYAMINE
     Indication: IRRITABLE BOWEL SYNDROME
     Dosage: 1 PILL EVERY NIGHT MOUTH
     Route: 048
     Dates: start: 2014
  2. ALPRAZOLAM. [Concomitant]
     Active Substance: ALPRAZOLAM
  3. CITRACAL [Concomitant]
     Active Substance: CALCIUM CITRATE
  4. CALCIUM SUPPLEMENT [Concomitant]
     Active Substance: CALCIUM
  5. APRI [Concomitant]
     Active Substance: DESOGESTREL\ETHINYL ESTRADIOL
  6. MULTIVITES [Concomitant]

REACTIONS (1)
  - Product use issue [None]
